FAERS Safety Report 6452152-X (Version None)
Quarter: 2009Q4

REPORT INFORMATION
  Report Type: 
  Country: None (occurrence: None)
  Receive Date: 20091123
  Receipt Date: 20081224
  Transmission Date: 20100525
  Serious: No
  Sender: FDA-Public Use
  Company Number: US-AMGEN-KDL325633

PATIENT
  Sex: Female

DRUGS (6)
  1. ENBREL [Suspect]
     Indication: RHEUMATOID ARTHRITIS
     Dates: start: 20081002
  2. MIRTAZAPINE [Concomitant]
  3. LYRICA [Concomitant]
  4. HYDROCHLOROTHIAZIDE [Concomitant]
  5. DIFLUNISAL [Concomitant]
  6. LEFLUNOMIDE [Concomitant]

REACTIONS (3)
  - DIARRHOEA [None]
  - INJECTION SITE PAIN [None]
  - VOMITING [None]
